FAERS Safety Report 5714333-X (Version None)
Quarter: 2008Q2

REPORT INFORMATION
  Report Type: 
  Country: None (occurrence: None)
  Receive Date: 20080422
  Receipt Date: 20080422
  Transmission Date: 20081010
  Serious: Yes (Other)
  Sender: FDA-Public Use
  Company Number: None

PATIENT
  Sex: Female

DRUGS (4)
  1. REVLIMID [Suspect]
     Indication: MYELODYSPLASTIC SYNDROME
     Dosage: 10MG EVERY OTHER DAY PO
     Route: 048
  2. FAMOTIDINE [Concomitant]
  3. NASAREL [Concomitant]
  4. NABUMETONE [Concomitant]

REACTIONS (1)
  - NEUTROPENIA [None]
